FAERS Safety Report 7319078-0 (Version None)
Quarter: 2011Q1

REPORT INFORMATION
  Report Type: 
  Country: None (occurrence: None)
  Receive Date: 20110228
  Receipt Date: 20100917
  Transmission Date: 20110831
  Serious: Yes (Other)
  Sender: FDA-Public Use
  Company Number: US-BAYER-201027031NA

PATIENT
  Sex: Female
  Weight: 66 kg

DRUGS (13)
  1. YASMIN [Suspect]
     Indication: ADNEXA UTERI PAIN
  2. YAZ [Suspect]
     Indication: ORAL CONTRACEPTION
     Dosage: UNK
     Dates: start: 20100301, end: 20100401
  3. CARAFATE [Concomitant]
     Dosage: 1 G, UNK
     Dates: start: 20080601
  4. UNCODEABLE ^UNCLASSIFIABLE^ [Concomitant]
  5. OCELLA [Suspect]
     Indication: ORAL CONTRACEPTION
     Dosage: UNK UNK, UNK
     Route: 048
     Dates: start: 20080801, end: 20100801
  6. OCELLA [Suspect]
     Indication: PREMENSTRUAL SYNDROME
  7. OCELLA [Suspect]
     Indication: ADNEXA UTERI PAIN
  8. YAZ [Suspect]
     Indication: ADNEXA UTERI PAIN
  9. NEXIUM [Concomitant]
  10. YASMIN [Suspect]
     Indication: ORAL CONTRACEPTION
     Dosage: UNK UNK, UNK
     Route: 048
     Dates: start: 20080501, end: 20080801
  11. YASMIN [Suspect]
     Indication: PREMENSTRUAL SYNDROME
  12. YAZ [Suspect]
     Indication: PREMENSTRUAL SYNDROME
  13. PRILOSEC [Concomitant]
     Dosage: 20 MG, UNK
     Dates: start: 20080601

REACTIONS (11)
  - PYREXIA [None]
  - DYSPEPSIA [None]
  - ABDOMINAL PAIN LOWER [None]
  - PAIN [None]
  - WEIGHT DECREASED [None]
  - NAUSEA [None]
  - VOMITING [None]
  - ABDOMINAL PAIN UPPER [None]
  - CHOLECYSTITIS CHRONIC [None]
  - IRRITABLE BOWEL SYNDROME [None]
  - DIARRHOEA [None]
